FAERS Safety Report 9018402 (Version 2)
Quarter: 2013Q2

REPORT INFORMATION
  Report Type: Spontaneous
  Country: US (occurrence: None)
  Receive Date: 20120524
  Receipt Date: 20120828
  Transmission Date: 20140414
  Serious: Yes (Life-Threatening)
  Sender: FDA-Public Use
  Company Number: DEP_00608_2012

PATIENT
  Age: 60 Year
  Sex: Male
  Weight: 113.4 kg

DRUGS (10)
  1. GRALISE [Suspect]
     Indication: NERVE INJURY
     Dosage: DF
     Route: 048
     Dates: start: 20120312, end: 20120326
  2. GRALISE [Suspect]
     Indication: OFF LABEL USE
     Dosage: DF
     Route: 048
     Dates: start: 20120312, end: 20120326
  3. DEPAKOT (UNKNOWN UNTIL CONTINUING) [Concomitant]
  4. OXYCODONE/APA/0161701 (UNKNOWN UNTIL CONTINUING) [Concomitant]
  5. OPANA ( UNKNOWN UNTIL CONTINUING) [Concomitant]
  6. LISINOPRIL  ( UNKNOWN UNTIL CONTINUING) [Concomitant]
  7. KCL  ( UNKNOWN UNTIL CONTINUING) [Concomitant]
  8. LASIX /00032601/ (UNKNOWN UNTIL CONTINUING) [Concomitant]
  9. LUNESTA  (UNKNOWN UNTIL CONTINUING) [Concomitant]
  10. PROZAC [Concomitant]

REACTIONS (2)
  - Suicidal ideation [None]
  - Depression [None]
